FAERS Safety Report 12904006 (Version 2)
Quarter: 2016Q4

REPORT INFORMATION
  Report Type: Report from Study
  Country: BR (occurrence: BR)
  Receive Date: 20161102
  Receipt Date: 20161121
  Transmission Date: 20170207
  Serious: Yes (Other)
  Sender: FDA-Public Use
  Company Number: BR-JNJFOC-20161011492

PATIENT
  Age: 54 Year
  Sex: Female
  Weight: 73 kg

DRUGS (3)
  1. REMICADE [Suspect]
     Active Substance: INFLIXIMAB
     Indication: RHEUMATOID ARTHRITIS
     Route: 042
     Dates: start: 20160905, end: 201609
  2. REMICADE [Suspect]
     Active Substance: INFLIXIMAB
     Indication: RHEUMATOID ARTHRITIS
     Route: 042
     Dates: start: 20160919
  3. DIPROBETA [Concomitant]

REACTIONS (8)
  - Arthralgia [Recovered/Resolved]
  - Decreased appetite [Unknown]
  - Peripheral coldness [Unknown]
  - Tremor [Unknown]
  - Alopecia [Recovered/Resolved]
  - Asthenia [Recovering/Resolving]
  - Apparent death [Unknown]
  - Tachycardia [Unknown]

NARRATIVE: CASE EVENT DATE: 20160905
